FAERS Safety Report 7417624-X (Version None)
Quarter: 2011Q2

REPORT INFORMATION
  Report Type: 
  Country: None (occurrence: None)
  Receive Date: 20110415
  Receipt Date: 20110404
  Transmission Date: 20111010
  Serious: Yes (Hospitalization)
  Sender: FDA-Public Use
  Company Number: PHHY2011US26251

PATIENT
  Age: 89 Year
  Sex: Female

DRUGS (7)
  1. MEGRAL [Concomitant]
     Dosage: UNK
  2. LASIX [Concomitant]
  3. POTASSIUM CHLORIDE [Concomitant]
  4. PROTONIX [Concomitant]
  5. CARVEDILOL [Concomitant]
  6. DIOVAN [Suspect]
     Dosage: 320 MG, DAILY
  7. LIDODERM [Concomitant]

REACTIONS (5)
  - OEDEMA PERIPHERAL [None]
  - RENAL DISORDER [None]
  - UNRESPONSIVE TO STIMULI [None]
  - JOINT SWELLING [None]
  - HYPOTENSION [None]
